FAERS Safety Report 8168817-8 (Version None)
Quarter: 2012Q1

REPORT INFORMATION
  Report Type: 
  Country: None (occurrence: None)
  Receive Date: 20120222
  Receipt Date: 20120210
  Transmission Date: 20120608
  Serious: Yes (Hospitalization)
  Sender: FDA-Public Use
  Company Number: 1000027598

PATIENT
  Age: 43 Year
  Sex: Male

DRUGS (5)
  1. LEXOMIL (BRAMAZEPAM) [Suspect]
     Indication: SUICIDE ATTEMPT
     Dosage: ONE UNIQUE INTAKE (UNKNOWN DOSAGE), ORAL
     Route: 048
     Dates: start: 20110801, end: 20110801
  2. ALCOHOL (ETHANOL) [Suspect]
     Indication: SUICIDE ATTEMPT
  3. PROPRANOLOL [Suspect]
     Indication: SUICIDE ATTEMPT
     Dosage: OVERDOSE: 2 G ONCE, ORAL
     Route: 048
     Dates: start: 20110801, end: 20110801
  4. ESCITALOPRAM OXALATE [Suspect]
     Indication: SUICIDE ATTEMPT
     Dosage: 20 MG (20 MG, 1 IN 1 D), ORAL   OVERDOSE: 280 MG ONCE, ORAL
     Route: 048
     Dates: start: 20110801, end: 20110801
  5. TETRAZEPAM (TETRAZEPAM) [Suspect]
     Indication: SUICIDE ATTEMPT
     Dosage: OVERDOSE: 500 MG ONCE, ORAL
     Route: 048
     Dates: start: 20110801, end: 20110801

REACTIONS (4)
  - FEELING DRUNK [None]
  - SUICIDE ATTEMPT [None]
  - INCORRECT DOSE ADMINISTERED [None]
  - TOXICITY TO VARIOUS AGENTS [None]
